FAERS Safety Report 9378564 (Version 1)
Quarter: 2013Q3

REPORT INFORMATION
  Report Type: Report from Study
  Country: US (occurrence: US)
  Receive Date: 20130702
  Receipt Date: 20130702
  Transmission Date: 20140515
  Serious: Yes (Other)
  Sender: FDA-Public Use
  Company Number: US-ROCHE-1241343

PATIENT
  Age: 54 Year
  Sex: Female
  Weight: 72.19 kg

DRUGS (6)
  1. XELODA [Suspect]
     Indication: CHEMOTHERAPY
     Route: 048
     Dates: start: 20130518, end: 20130526
  2. TAXOTERE [Concomitant]
     Indication: CHEMOTHERAPY
     Dosage: 64 MG WEEKLY
     Route: 042
     Dates: start: 20130518
  3. DECADRON [Concomitant]
     Indication: PREMEDICATION
     Route: 042
     Dates: start: 20130518
  4. BENADRYL (UNITED STATES) [Concomitant]
     Indication: PREMEDICATION
     Route: 042
     Dates: start: 20130518
  5. ZOFRAN [Concomitant]
     Indication: PREMEDICATION
     Route: 042
     Dates: start: 20130518
  6. ZANTAC [Concomitant]
     Indication: PREMEDICATION
     Route: 042
     Dates: start: 20130518

REACTIONS (11)
  - Flushing [Recovered/Resolved]
  - Lip swelling [Recovered/Resolved]
  - Chapped lips [Recovered/Resolved]
  - Stomatitis [Recovered/Resolved]
  - Oropharyngeal pain [Recovered/Resolved]
  - Dehydration [Recovered/Resolved]
  - Diarrhoea [Recovered/Resolved]
  - Oral pain [Unknown]
  - Skin fissures [Unknown]
  - Skin exfoliation [Unknown]
  - Chapped lips [Unknown]
